FAERS Safety Report 12104238 (Version 3)
Quarter: 2020Q3

REPORT INFORMATION
  Report Type: Spontaneous
  Country: ES (occurrence: ES)
  Receive Date: 20160223
  Receipt Date: 20190725
  Transmission Date: 20201104
  Serious: Yes (Other)
  Sender: FDA-Public Use
  Company Number: ES-ROCHE-1703079

PATIENT
  Age: 82 Year
  Sex: Female

DRUGS (7)
  1. IBANDRONIC ACID. [Suspect]
     Active Substance: IBANDRONIC ACID
     Indication: POLYMYALGIA RHEUMATICA
     Route: 048
  2. RISEDRONIC ACID [Suspect]
     Active Substance: RISEDRONIC ACID
     Indication: POLYMYALGIA RHEUMATICA
     Route: 048
  3. DENOSUMAB [Suspect]
     Active Substance: DENOSUMAB
     Indication: OSTEOPOROSIS
     Route: 065
  4. ETIDRONIC ACID [Suspect]
     Active Substance: ETIDRONIC ACID
     Indication: POLYMYALGIA RHEUMATICA
     Route: 048
  5. ALENDRONIC ACID [Suspect]
     Active Substance: ALENDRONIC ACID
     Indication: POLYMYALGIA RHEUMATICA
     Route: 048
  6. PREDNISONE. [Suspect]
     Active Substance: PREDNISONE
     Indication: POLYMYALGIA RHEUMATICA
     Dosage: 5?10 MG/DAY
     Route: 048
  7. OMEPRAZOLE. [Concomitant]
     Active Substance: OMEPRAZOLE
     Route: 048

REACTIONS (4)
  - Off label use [Unknown]
  - Atypical femur fracture [Unknown]
  - Fracture delayed union [Unknown]
  - Intentional product use issue [Unknown]
